FAERS Safety Report 6491265-3 (Version None)
Quarter: 2009Q4

REPORT INFORMATION
  Report Type: 
  Country: None (occurrence: None)
  Receive Date: 20091211
  Receipt Date: 20091204
  Transmission Date: 20100525
  Serious: Yes (Other)
  Sender: FDA-Public Use
  Company Number: PHHY2009HU48389

PATIENT
  Age: 63 Year
  Sex: Female

DRUGS (3)
  1. EUCREAS [Suspect]
     Indication: TYPE 2 DIABETES MELLITUS
     Dosage: 2X 1000/50 MG
     Route: 048
     Dates: start: 20091009
  2. AMLODIPINE [Concomitant]
     Dosage: 5 MG, UNK
  3. SYNCUMAR [Concomitant]

REACTIONS (2)
  - BLOOD GLUCOSE INCREASED [None]
  - PANCYTOPENIA [None]
